FAERS Safety Report 7772313 (Version 8)
Quarter: 2015Q4

REPORT INFORMATION
  Report Type: Report from Study
  Country: US (occurrence: US)
  Receive Date: 20110125
  Receipt Date: 20151014
  Transmission Date: 20160305
  Serious: Yes (Hospitalization, Other)
  Sender: FDA-Public Use
  Company Number: US-BIOGENIDEC-2011BI002428

PATIENT
  Age: 58 Year
  Sex: Female
  Weight: 64 kg

DRUGS (2)
  1. AVONEX [Suspect]
     Active Substance: INTERFERON BETA-1A
     Indication: MULTIPLE SCLEROSIS
     Route: 030
     Dates: start: 19980510, end: 2003
  2. AVONEX [Suspect]
     Active Substance: INTERFERON BETA-1A
     Indication: MULTIPLE SCLEROSIS
     Route: 030
     Dates: start: 2003

REACTIONS (26)
  - Fear of injection [Not Recovered/Not Resolved]
  - Skin cancer [Recovered/Resolved]
  - Cough [Recovered/Resolved]
  - Incorrect product storage [Unknown]
  - Myocardial infarction [Recovered/Resolved]
  - Gait disturbance [Recovered/Resolved]
  - Injection site bruising [Not Recovered/Not Resolved]
  - Scar [Not Recovered/Not Resolved]
  - Injection site mass [Recovered/Resolved]
  - Fall [Recovered/Resolved]
  - Injection site pain [Not Recovered/Not Resolved]
  - Injury associated with device [Recovered/Resolved]
  - Muscle fatigue [Not Recovered/Not Resolved]
  - Nervousness [Not Recovered/Not Resolved]
  - Bone contusion [Recovered/Resolved]
  - Confusional state [Recovered/Resolved]
  - Retinal detachment [Not Recovered/Not Resolved]
  - Erythema [Not Recovered/Not Resolved]
  - Haemorrhage [Not Recovered/Not Resolved]
  - Eye pain [Not Recovered/Not Resolved]
  - Lack of injection site rotation [Not Recovered/Not Resolved]
  - Fatigue [Not Recovered/Not Resolved]
  - Hip fracture [Recovered/Resolved]
  - Weight fluctuation [Unknown]
  - Injection site discolouration [Not Recovered/Not Resolved]
  - Post-traumatic stress disorder [Not Recovered/Not Resolved]

NARRATIVE: CASE EVENT DATE: 1998
